FAERS Safety Report 4588437-1 (Version None)
Quarter: 2005Q1

REPORT INFORMATION
  Report Type: 
  Country: None (occurrence: None)
  Receive Date: 20050216
  Receipt Date: 20050131
  Transmission Date: 20050727
  Serious: Yes (Other)
  Sender: FDA-Public Use
  Company Number: USA050188196

PATIENT
  Sex: Male

DRUGS (17)
  1. ALIMTA [Suspect]
     Indication: NON-SMALL CELL LUNG CANCER
     Dates: start: 20041209
  2. VITAMIN B-12 [Concomitant]
  3. DECADRON [Concomitant]
  4. FOLIC ACID [Concomitant]
  5. THEO-DUR [Concomitant]
  6. SINGULAIR (MONTELUKAST) [Concomitant]
  7. NEURONTIN (GABAPENTIN PFIZER) [Concomitant]
  8. AMBIEN [Concomitant]
  9. ALBUTEROL [Concomitant]
  10. SONATA [Concomitant]
  11. CENTRUM [Concomitant]
  12. HYDROCODONE [Concomitant]
  13. ARANESP [Concomitant]
  14. SENOKOT (SENNA ALEXANDRINA) [Concomitant]
  15. LEXAPRO [Concomitant]
  16. ACETYLSALICYLIC ACID SRT [Concomitant]
  17. COUMADIN [Concomitant]

REACTIONS (5)
  - BACTERIAL INFECTION [None]
  - CELLULITIS STAPHYLOCOCCAL [None]
  - DISEASE PROGRESSION [None]
  - NON-SMALL CELL LUNG CANCER [None]
  - SKIN EXFOLIATION [None]
